FAERS Safety Report 5625028-5 (Version None)
Quarter: 2008Q1

REPORT INFORMATION
  Report Type: 
  Country: None (occurrence: None)
  Receive Date: 20080213
  Receipt Date: 20080206
  Transmission Date: 20080703
  Serious: Yes (Hospitalization)
  Sender: FDA-Public Use
  Company Number: FR-PFIZER INC-2007102020

PATIENT
  Sex: Female
  Weight: 57 kg

DRUGS (3)
  1. CELEBREX [Suspect]
     Indication: SHOULDER OPERATION
     Route: 048
     Dates: start: 20071001, end: 20071105
  2. TRAMADOL HCL [Interacting]
     Indication: SHOULDER OPERATION
     Route: 048
     Dates: start: 20071005, end: 20071005
  3. DRUG, UNSPECIFIED [Concomitant]

REACTIONS (6)
  - ANGINA PECTORIS [None]
  - CHEST PAIN [None]
  - DRUG INTERACTION [None]
  - HYPERHIDROSIS [None]
  - NAUSEA [None]
  - TREMOR [None]
